FAERS Safety Report 7547244-8 (Version None)
Quarter: 2011Q2

REPORT INFORMATION
  Report Type: 
  Country: None (occurrence: None)
  Receive Date: 20110614
  Receipt Date: 20110526
  Transmission Date: 20111010
  Serious: No
  Sender: FDA-Public Use
  Company Number: US-JNJFOC-20110309755

PATIENT
  Age: 50 Year
  Sex: Female

DRUGS (3)
  1. INVEGA SUSTENNA [Suspect]
     Indication: PRODUCT USED FOR UNKNOWN INDICATION
     Route: 030
     Dates: end: 20090101
  2. INVEGA [Suspect]
     Indication: PRODUCT USED FOR UNKNOWN INDICATION
     Dosage: AM
     Route: 048
     Dates: start: 20100317
  3. INVEGA SUSTENNA [Suspect]
     Dosage: 2/9, 3/9/11, 4/6, 5/4/11 EVERY MONTH
     Route: 030
     Dates: start: 20091223

REACTIONS (10)
  - ANGER [None]
  - DRUG ADMINISTERED AT INAPPROPRIATE SITE [None]
  - ERYTHEMA [None]
  - PRODUCT QUALITY ISSUE [None]
  - SWELLING [None]
  - INJECTION SITE REACTION [None]
  - HYPERSOMNIA [None]
  - DEPRESSION [None]
  - INJECTION SITE PAIN [None]
  - WEIGHT INCREASED [None]
